FAERS Safety Report 7324461-3 (Version None)
Quarter: 2011Q1

REPORT INFORMATION
  Report Type: 
  Country: None (occurrence: None)
  Receive Date: 20110301
  Receipt Date: 20110224
  Transmission Date: 20110831
  Serious: Yes (Other)
  Sender: FDA-Public Use
  Company Number: US-CEPHALON-2011000888

PATIENT
  Sex: Female
  Weight: 61 kg

DRUGS (6)
  1. ACETAMINOPHEN [Concomitant]
  2. TREANDA [Suspect]
     Indication: NON-HODGKIN'S LYMPHOMA RECURRENT
     Route: 042
     Dates: start: 20110106, end: 20110128
  3. ALOXI [Concomitant]
  4. BENADRYL [Concomitant]
  5. RITUXAN [Concomitant]
     Dates: start: 20110106
  6. DECADRON [Concomitant]

REACTIONS (4)
  - PLATELET COUNT DECREASED [None]
  - VERTIGO [None]
  - ORTHOSTATIC HYPOTENSION [None]
  - DEHYDRATION [None]
